FAERS Safety Report 21688686 (Version 1)
Quarter: 2022Q4

REPORT INFORMATION
  Report Type: Spontaneous
  Country: US (occurrence: US)
  Receive Date: 20221206
  Receipt Date: 20221206
  Transmission Date: 20230113
  Serious: No
  Sender: FDA-Public Use
  Company Number: US-PFIZER INC-PV202200116609

PATIENT
  Age: 81 Year
  Sex: Female

DRUGS (10)
  1. XELJANZ [Suspect]
     Active Substance: TOFACITINIB CITRATE
     Indication: Rheumatoid arthritis
     Dosage: UNK
  2. KEVZARA [Suspect]
     Active Substance: SARILUMAB
     Indication: Rheumatoid arthritis
     Dosage: STRENGTH: 200 MG/ 1.14 ML, QOW
     Route: 058
     Dates: start: 20220819
  3. CHOLECALCIFEROL [Concomitant]
     Active Substance: CHOLECALCIFEROL
     Dosage: UNK
  4. ASCORBIC ACID [Concomitant]
     Active Substance: ASCORBIC ACID
     Dosage: UNK
  5. TIZANIDINE [Concomitant]
     Active Substance: TIZANIDINE
     Dosage: UNK
  6. PREDNISONE [Concomitant]
     Active Substance: PREDNISONE
     Dosage: UNK
  7. PRAMIPEXOLE [Concomitant]
     Active Substance: PRAMIPEXOLE
     Dosage: UNK
  8. MELATONIN [Concomitant]
     Active Substance: MELATONIN
     Dosage: UNK
  9. LOSARTAN [Concomitant]
     Active Substance: LOSARTAN
     Dosage: UNK
  10. ELIQUIS [Concomitant]
     Active Substance: APIXABAN
     Dosage: UNK

REACTIONS (2)
  - Joint swelling [Unknown]
  - Arthralgia [Unknown]
